FAERS Safety Report 5057091-7 (Version None)
Quarter: 2006Q3

REPORT INFORMATION
  Report Type: 
  Country: None (occurrence: None)
  Receive Date: 20060718
  Receipt Date: 20060706
  Transmission Date: 20061208
  Serious: Yes (Death)
  Sender: FDA-Public Use
  Company Number: WAES 0606DEU00084

PATIENT
  Age: 78 Year
  Sex: Female

DRUGS (4)
  1. FOSAMAX [Suspect]
     Indication: OSTEOPOROSIS
     Dosage: 10 MG/DAILY PO
     Route: 048
     Dates: start: 20041126
  2. PLACEBO (UNSPECIFIED) [Suspect]
     Indication: OSTEOPOROSIS
     Dosage: SC
     Route: 058
     Dates: start: 20041126
  3. CALCIUM GLUCONATE [Concomitant]
  4. VITAMIN D [Concomitant]

REACTIONS (1)
  - DEATH [None]
